FAERS Safety Report 10518957 (Version 1)
Quarter: 2014Q4

REPORT INFORMATION
  Report Type: Spontaneous
  Country: US (occurrence: None)
  Receive Date: 20141014
  Receipt Date: 20141014
  Transmission Date: 20150528
  Serious: Yes (Other)
  Sender: FDA-Public Use
  Company Number: None

PATIENT
  Age: 47 Year
  Sex: Female
  Weight: 139.71 kg

DRUGS (1)
  1. FENTANYL. [Suspect]
     Active Substance: FENTANYL
     Indication: MIGRAINE
     Dosage: 1 LOZENGE PER DAY FOR MIGRAINE PAIN
     Route: 048

REACTIONS (4)
  - Tooth fracture [None]
  - Denture wearer [None]
  - Dental caries [None]
  - Dental implantation [None]

NARRATIVE: CASE EVENT DATE: 20140101
